FAERS Safety Report 9160761 (Version 1)
Quarter: 2013Q1

REPORT INFORMATION
  Report Type: Spontaneous
  Country: CM (occurrence: CM)
  Receive Date: 20130313
  Receipt Date: 20130313
  Transmission Date: 20140127
  Serious: Yes (Other)
  Sender: FDA-Public Use
  Company Number: CM-ABBOTT-13P-056-1060767-00

PATIENT
  Age: 45 Year
  Sex: Female

DRUGS (3)
  1. LOPINAVIR/RITONAVIR [Suspect]
     Indication: HIV INFECTION
     Dates: end: 200902
  2. DIDANOSINE [Suspect]
     Indication: HIV INFECTION
     Dates: end: 200902
  3. NEVIRAPINE [Suspect]
     Indication: HIV INFECTION
     Dates: end: 200902

REACTIONS (2)
  - Kaposi^s sarcoma [Recovered/Resolved]
  - Drug resistance [Unknown]
